FAERS Safety Report 4763554-1 (Version None)
Quarter: 2005Q3

REPORT INFORMATION
  Report Type: 
  Country: None (occurrence: None)
  Receive Date: 20050902
  Receipt Date: 20041028
  Transmission Date: 20060218
  Serious: Yes (Hospitalization)
  Sender: FDA-Public Use
  Company Number: 2004AL001217

PATIENT
  Age: 46 Year
  Sex: Male

DRUGS (2)
  1. KADIAN [Suspect]
     Dosage: 20 MG; QD
  2. LORTAB [Suspect]
     Dosage: QID

REACTIONS (1)
  - RESPIRATORY DEPRESSION [None]
